FAERS Safety Report 7426356-3 (Version None)
Quarter: 2011Q2

REPORT INFORMATION
  Report Type: 
  Country: None (occurrence: None)
  Receive Date: 20110420
  Receipt Date: 20110413
  Transmission Date: 20111010
  Serious: Yes (Other)
  Sender: FDA-Public Use
  Company Number: B0714229A

PATIENT
  Age: 15 Year
  Sex: Female
  Weight: 60 kg

DRUGS (3)
  1. IBUPROFEN [Concomitant]
     Dosage: 1600MG PER DAY
     Dates: start: 20110412, end: 20110412
  2. PARACETAMOL [Concomitant]
     Dates: start: 20110412, end: 20110412
  3. FORMIGRAN [Suspect]
     Indication: PRODUCT USED FOR UNKNOWN INDICATION
     Dosage: 10MG SINGLE DOSE
     Dates: start: 20110412, end: 20110412

REACTIONS (1)
  - SUICIDE ATTEMPT [None]
